FAERS Safety Report 19930842 (Version 1)
Quarter: 2021Q4

REPORT INFORMATION
  Report Type: Spontaneous
  Country: US (occurrence: US)
  Receive Date: 20211007
  Receipt Date: 20211007
  Transmission Date: 20220303
  Serious: Yes (Other)
  Sender: FDA-Public Use
  Company Number: US-PFIZER INC-2016178049

PATIENT
  Age: 71 Year
  Sex: Male

DRUGS (37)
  1. LYRICA [Suspect]
     Active Substance: PREGABALIN
     Indication: Neuropathy peripheral
     Dosage: 150 MG, 4X/DAY
     Route: 048
     Dates: start: 20151224, end: 20160202
  2. LYRICA [Suspect]
     Active Substance: PREGABALIN
     Dosage: 150 MG, 4X/DAY (1 FOUR TIMES A DAY)
     Route: 048
     Dates: start: 20160202
  3. ALBUTEROL SULFATE [Concomitant]
     Active Substance: ALBUTEROL SULFATE
     Dosage: 90 UG, UNK (ACTUATION AEPB) (INHALE 2 PUFFS INTO THE LUNGS)
  4. ELAVIL [Concomitant]
     Active Substance: AMITRIPTYLINE HYDROCHLORIDE
     Dosage: 50 MG, UNK (NIGHTLY )
     Route: 048
     Dates: start: 20150902
  5. SYMBICORT [Concomitant]
     Active Substance: BUDESONIDE\FORMOTEROL FUMARATE DIHYDRATE
     Dosage: BUDESONIDE: 160, FORMOTEROL FUMARATE:4.5 ) ACTUATION INHALER (INHALE 2 PUFFS INTO THE LUNGS 2 (TWO)
     Dates: start: 20150913
  6. CALCIUM + MAGNESIUM + ZINK [Concomitant]
     Dosage: UNK, DAILY
     Route: 048
  7. VITAMIN D3 [Concomitant]
     Active Substance: CHOLECALCIFEROL
     Dosage: 5000 IU, DAILY
     Route: 048
  8. KLONOPIN [Concomitant]
     Active Substance: CLONAZEPAM
     Dosage: 0.5 MG, AS NEEDED (DAILY)
     Route: 048
     Dates: start: 20160107
  9. CRANBERRY [Concomitant]
     Active Substance: CRANBERRY
     Dosage: 25000 MG, DAILY
     Route: 048
  10. COLACE [Concomitant]
     Active Substance: DOCUSATE SODIUM
     Dosage: 100 MG, 2X/DAY
     Route: 048
  11. AVODART [Concomitant]
     Active Substance: DUTASTERIDE
     Dosage: 0.5 MG, DAILY
     Route: 048
  12. FERROUS SULFATE [Concomitant]
     Active Substance: FERROUS SULFATE
     Dosage: 325 MG, DAILY (WITH BREAKFAST TAKE WITH FOOD )
     Route: 048
  13. LASIX [Concomitant]
     Active Substance: FUROSEMIDE
     Dosage: 60 MG, 1X/DAY  (40 MG QAM AND 20 MG AT NOON)
     Dates: start: 20151216
  14. ATROVENT [Concomitant]
     Active Substance: IPRATROPIUM BROMIDE
     Dosage: 0.5 MG, 4X/DAY
  15. IMDUR [Concomitant]
     Active Substance: ISOSORBIDE MONONITRATE
     Dosage: 30 MG, 1X/DAY
     Route: 048
     Dates: start: 20151216
  16. CEPHULAC [Concomitant]
     Active Substance: LACTULOSE
     Dosage: 10 G, 3X/DAY
     Route: 048
  17. SYNTHROID [Concomitant]
     Active Substance: LEVOTHYROXINE SODIUM
     Dosage: 125 UG, 1X/DAY (EVERY MORNING BEFORE BREAKFAST )
     Route: 048
     Dates: start: 20151215
  18. LINZESS [Concomitant]
     Active Substance: LINACLOTIDE
     Dosage: 145 UG, 1X/DAY (EVERY EVENING )
     Route: 048
     Dates: start: 20151224
  19. CLARITIN [Concomitant]
     Active Substance: LORATADINE
     Dosage: 10 MG, DAILY
  20. MEDROL [Concomitant]
     Active Substance: METHYLPREDNISOLONE
     Route: 048
  21. ZAROXOLYN [Concomitant]
     Active Substance: METOLAZONE
     Dosage: 5 MG, DAILY (TAKE 30 MIN+ BEFORE FUROSEMIDE IF GIVEN WITH LOOP DIURETIC)
     Route: 048
     Dates: start: 20150621
  22. DULERA [Concomitant]
     Active Substance: FORMOTEROL FUMARATE DIHYDRATE\MOMETASONE FUROATE
     Dosage: UNK (FORMOTEROL FUMARATE:200MCG, MOMETASONE FUROATE:5 MCG) (INHALE INTO THE LUNGS-INHALATION)
  23. MORPHINE SULFATE [Concomitant]
     Active Substance: MORPHINE SULFATE
     Dosage: 15 MG, AS NEEDED ((1 TABLET) BY MOUTH 2 (TWO) TIMES DAILY)
     Dates: start: 20160216, end: 20160314
  24. NALOXONE [Concomitant]
     Active Substance: NALOXONE
     Indication: Sedation
     Dosage: UNK (0.4 MG/0.4 ML ATLN) (INJECT 1 SYRINGE)
     Dates: start: 20160107
  25. NITROSTAT [Concomitant]
     Active Substance: NITROGLYCERIN
     Indication: Chest pain
     Dosage: 0.4 MG, AS NEEDED ((1 TABLET) UNDER THE TONGUE EVERY 5 .(FIVE) MINUTES )
     Route: 060
     Dates: start: 20151224
  26. PRILOSEC [Concomitant]
     Active Substance: OMEPRAZOLE MAGNESIUM
     Dosage: 20 MG, DAILY
     Route: 048
     Dates: start: 20151216
  27. MIRALAX [Concomitant]
     Active Substance: POLYETHYLENE GLYCOL 3350
     Dosage: 17 G, AS NEEDED (2 (TWO) TIMES DAILY )
     Route: 048
     Dates: start: 20150728
  28. K-DUR [Concomitant]
     Active Substance: POTASSIUM CHLORIDE
     Dosage: 20 MEQ, DAILY
     Route: 048
  29. KLOR-CON [Concomitant]
     Active Substance: POTASSIUM CHLORIDE
     Dosage: 20 MEQ, DAILY
     Route: 048
  30. MYSOLINE [Concomitant]
     Active Substance: PRIMIDONE
     Dosage: 50 MG, 2X/DAY (IN THE MORNING AND IN THE AFTERNOON)
     Route: 048
     Dates: start: 20160107
  31. SPIRIVA [Concomitant]
     Active Substance: TIOTROPIUM BROMIDE MONOHYDRATE
     Dosage: 18 UG, UNK
     Route: 055
     Dates: start: 20150908
  32. DESYREL [Concomitant]
     Active Substance: TRAZODONE HYDROCHLORIDE
     Dosage: 50 MG, DAILY (NIGHTLY)
     Route: 048
  33. VITAMIN B12 [Concomitant]
     Active Substance: CYANOCOBALAMIN
     Dosage: 1000 UG, DAILY
     Route: 048
  34. NEURONTIN [Concomitant]
     Active Substance: GABAPENTIN
     Dosage: 300 MG, 3X/DAY
     Route: 048
     Dates: start: 20151224, end: 20160202
  35. COUMADIN [Concomitant]
     Active Substance: WARFARIN SODIUM
     Dosage: 6 MG, UNK (ON TUES AND THURS)
  36. COUMADIN [Concomitant]
     Active Substance: WARFARIN SODIUM
     Dosage: 9 MG, UNK (ALL OTHER DAYS)
  37. LEVOTHROID [Concomitant]
     Active Substance: LEVOTHYROXINE SODIUM
     Dosage: 125 UG, DAILY (EVERY MORNING BEFORE BREAKFAST)
     Route: 048
     Dates: start: 20151215

REACTIONS (2)
  - Upper limb fracture [Unknown]
  - Product use issue [Unknown]
